FAERS Safety Report 7972207-8 (Version None)
Quarter: 2011Q4

REPORT INFORMATION
  Report Type: 
  Country: None (occurrence: None)
  Receive Date: 20111212
  Receipt Date: 20111201
  Transmission Date: 20120403
  Serious: Yes (Hospitalization)
  Sender: FDA-Public Use
  Company Number: JP-ELI_LILLY_AND_COMPANY-JP201111002506

PATIENT
  Age: 87 Year
  Sex: Female

DRUGS (6)
  1. EVISTA [Suspect]
     Dosage: UNK
     Route: 048
     Dates: end: 20111101
  2. FLOMOX [Concomitant]
  3. OMEPRAZOLE [Concomitant]
  4. AMLODIPINE [Concomitant]
  5. NEUROTROPIN                        /06251301/ [Concomitant]
  6. FUROSEMIDE [Concomitant]

REACTIONS (1)
  - CELLULITIS [None]
